FAERS Safety Report 8613948-9 (Version None)
Quarter: 2012Q3

REPORT INFORMATION
  Report Type: 
  Country: None (occurrence: None)
  Receive Date: 20120823
  Receipt Date: 20120818
  Transmission Date: 20120928
  Serious: No
  Sender: FDA-Public Use
  Company Number: US-PFIZER INC-2012203559

PATIENT

DRUGS (1)
  1. CHILDREN'S ADVIL [Suspect]
     Dosage: UNK

REACTIONS (2)
  - MALAISE [None]
  - DRUG ADMINISTRATION ERROR [None]
